FAERS Safety Report 20447112 (Version 3)
Quarter: 2023Q1

REPORT INFORMATION
  Report Type: Other
  Country: GB (occurrence: None)
  Receive Date: 20220209
  Receipt Date: 20230324
  Transmission Date: 20230417
  Serious: No
  Sender: FDA-Public Use
  Company Number: GB-ROCHE-3017075

PATIENT
  Age: 63 Year
  Sex: Female
  Weight: 63.8 kg

DRUGS (4)
  1. OCRELIZUMAB [Suspect]
     Active Substance: OCRELIZUMAB
     Indication: Relapsing-remitting multiple sclerosis
     Dosage: SUBSEQUENT DOSES RECEIVED ON 25/JUL/2019
     Route: 042
     Dates: start: 20190711, end: 20190711
  2. OCRELIZUMAB [Suspect]
     Active Substance: OCRELIZUMAB
     Dosage: SUBSEQUENT DOSES RECEIVED ON 03/AUG/2020, 01/FEB/2021, 02/AUG/2021, 31/JAN/2022, 02/AUG/2022, 31/JAN
     Route: 042
     Dates: start: 20200109, end: 20200109
  3. PREGABALIN [Concomitant]
     Active Substance: PREGABALIN
     Route: 048
     Dates: start: 20191028
  4. PREGABALIN [Concomitant]
     Active Substance: PREGABALIN
     Route: 048
     Dates: start: 20191030, end: 20220329

REACTIONS (1)
  - COVID-19 [Recovered/Resolved]

NARRATIVE: CASE EVENT DATE: 20220118
